FAERS Safety Report 7806209-9 (Version None)
Quarter: 2011Q4

REPORT INFORMATION
  Report Type: 
  Country: None (occurrence: None)
  Receive Date: 20111011
  Receipt Date: 20110920
  Transmission Date: 20120403
  Serious: No
  Sender: FDA-Public Use
  Company Number: US-ROXANE LABORATORIES, INC.-2011-RO-01379RO

PATIENT

DRUGS (1)
  1. CODEINE SUL TAB [Suspect]

REACTIONS (5)
  - OEDEMA MOUTH [None]
  - PHARYNGEAL OEDEMA [None]
  - NAUSEA [None]
  - RASH [None]
  - VOMITING [None]
